FAERS Safety Report 4741408-4 (Version None)
Quarter: 2005Q3

REPORT INFORMATION
  Report Type: 
  Country: None (occurrence: None)
  Receive Date: 20050808
  Receipt Date: 20050802
  Transmission Date: 20060218
  Serious: Yes (Death)
  Sender: FDA-Public Use
  Company Number: Q05-031

PATIENT
  Age: 70 Year
  Sex: Male
  Weight: 99 kg

DRUGS (13)
  1. SAMARIUM 153 LEXIDRONAM [Suspect]
     Indication: PROSTATE CANCER METASTATIC
     Dosage: 1 MCI/KG
     Dates: start: 20050511
  2. TAXOTERE [Suspect]
     Indication: PROSTATE CANCER METASTATIC
     Dosage: 25 MG/M2 X3
     Dates: start: 20050512, end: 20050525
  3. DEXAMETHASONE [Concomitant]
  4. FUROSEMIDE [Concomitant]
  5. ASPIRIN [Concomitant]
  6. PROTONIX [Concomitant]
  7. HYDROCORTISONE [Concomitant]
  8. ENALAPRIL [Concomitant]
  9. TOPRIL [Concomitant]
  10. LOVENOX [Concomitant]
  11. HYDROCODONE [Concomitant]
  12. NITROLINGUAL [Concomitant]
  13. LIPITOR [Concomitant]

REACTIONS (9)
  - BLINDNESS TRANSIENT [None]
  - HAEMOPTYSIS [None]
  - HAEMORRHAGE [None]
  - MENINGEAL NEOPLASM [None]
  - MYOCARDIAL INFARCTION [None]
  - NEOPLASM PROGRESSION [None]
  - NUCLEAR MAGNETIC RESONANCE IMAGING ABNORMAL [None]
  - SPINAL DISORDER [None]
  - THROMBOTIC STROKE [None]
